FAERS Safety Report 7018160-5 (Version None)
Quarter: 2010Q3

REPORT INFORMATION
  Report Type: 
  Country: None (occurrence: None)
  Receive Date: 20100927
  Receipt Date: 20100927
  Transmission Date: 20110219
  Serious: Yes (Hospitalization)
  Sender: FDA-Public Use
  Company Number: None

PATIENT
  Sex: Female
  Weight: 32.5 kg

DRUGS (1)
  1. PEG ASPARAGINASE [Suspect]
     Indication: ACUTE LYMPHOCYTIC LEUKAEMIA
     Dosage: 3000 UNITS ONCE IM
     Route: 030
     Dates: start: 20100111, end: 20100111

REACTIONS (6)
  - BLOOD PRESSURE DECREASED [None]
  - CAPILLARY DISORDER [None]
  - FEELING HOT [None]
  - FLUSHING [None]
  - HEART RATE INCREASED [None]
  - RESPIRATORY RATE INCREASED [None]
